FAERS Safety Report 21372901 (Version 5)
Quarter: 2022Q4

REPORT INFORMATION
  Report Type: Report from Study
  Country: IL (occurrence: IL)
  Receive Date: 20220924
  Receipt Date: 20221111
  Transmission Date: 20230113
  Serious: Yes (Hospitalization)
  Sender: FDA-Public Use
  Company Number: IL-ABBVIE-4129239

PATIENT
  Age: 72 Year
  Sex: Male

DRUGS (2)
  1. CARBIDOPA\LEVODOPA [Suspect]
     Active Substance: CARBIDOPA\LEVODOPA
     Indication: Parkinson^s disease
     Dosage: MORNING DOSAGE(ML) 13.0, CONTINUOUS DOSAGE (ML/H) 4.0 , EXTRA DOSAGE (ML) 1.5, ?DURATION REMAINS ...
     Route: 050
     Dates: start: 20180707
  2. CARBIDOPA\LEVODOPA [Suspect]
     Active Substance: CARBIDOPA\LEVODOPA
     Dosage: MORNING DOSAGE(ML) 13.0, CONTINUOUS DOSAGE (ML/H) 4.0 , EXTRA DOSAGE (ML) 1.5?16 HRS
     Route: 050

REACTIONS (2)
  - Hand fracture [Recovering/Resolving]
  - Fall [Recovering/Resolving]

NARRATIVE: CASE EVENT DATE: 20220901
